FAERS Safety Report 6073257-1 (Version None)
Quarter: 2009Q1

REPORT INFORMATION
  Report Type: 
  Country: None (occurrence: None)
  Receive Date: 20090205
  Receipt Date: 20090121
  Transmission Date: 20090719
  Serious: Yes (Hospitalization)
  Sender: FDA-Public Use
  Company Number: 2009BM000008

PATIENT
  Age: 11 Year
  Sex: Male
  Weight: 22 kg

DRUGS (1)
  1. NAGLAZYME [Suspect]
     Indication: MUCOPOLYSACCHARIDOSIS VI
     Dosage: 20 MG;QW;IVDRP
     Route: 041
     Dates: start: 20071207

REACTIONS (1)
  - UMBILICAL HERNIA REPAIR [None]
